FAERS Safety Report 14739575 (Version 4)
Quarter: 2018Q4

REPORT INFORMATION
  Report Type: Report from Study
  Country: CH (occurrence: CH)
  Receive Date: 20180410
  Receipt Date: 20181031
  Transmission Date: 20190204
  Serious: Yes (Other)
  Sender: FDA-Public Use
  Company Number: CH-ROCHE-2102247

PATIENT

DRUGS (2)
  1. VEMURAFENIB. [Suspect]
     Active Substance: VEMURAFENIB
     Indication: METASTATIC MALIGNANT MELANOMA
     Route: 048
  2. VEMURAFENIB. [Suspect]
     Active Substance: VEMURAFENIB
     Indication: MALIGNANT MELANOMA

REACTIONS (44)
  - Diarrhoea [Unknown]
  - Alanine aminotransferase increased [Unknown]
  - Erythema [Unknown]
  - Photosensitivity reaction [Unknown]
  - Rash follicular [Unknown]
  - Headache [Unknown]
  - Rash generalised [Unknown]
  - Transaminases increased [Unknown]
  - Hepatic enzyme increased [Unknown]
  - Nausea [Unknown]
  - Constipation [Unknown]
  - Rash [Unknown]
  - Hypertension [Unknown]
  - Palmar-plantar erythrodysaesthesia syndrome [Unknown]
  - Keratoacanthoma [Unknown]
  - Rash maculo-papular [Unknown]
  - Squamous cell carcinoma [Unknown]
  - Rash erythematous [Unknown]
  - Squamous cell carcinoma of skin [Unknown]
  - Fatigue [Unknown]
  - Asthenia [Unknown]
  - Abdominal pain [Unknown]
  - Back pain [Unknown]
  - Rash macular [Unknown]
  - Rash vesicular [Unknown]
  - Gamma-glutamyltransferase increased [Unknown]
  - Pain in extremity [Unknown]
  - Decreased appetite [Unknown]
  - Rash papular [Unknown]
  - Rash pruritic [Unknown]
  - Exfoliative rash [Unknown]
  - Left ventricular dysfunction [Unknown]
  - Arthralgia [Unknown]
  - Anaemia [Unknown]
  - Solar dermatitis [Unknown]
  - Basal cell carcinoma [Unknown]
  - Vomiting [Unknown]
  - Myalgia [Unknown]
  - Palmoplantar keratoderma [Unknown]
  - Musculoskeletal pain [Unknown]
  - Aspartate aminotransferase increased [Unknown]
  - Lip squamous cell carcinoma [Unknown]
  - Ejection fraction decreased [Unknown]
  - Cardiac failure [Unknown]
